FAERS Safety Report 4807609-1 (Version None)
Quarter: 2005Q4

REPORT INFORMATION
  Report Type: 
  Country: None (occurrence: None)
  Receive Date: 20051024
  Receipt Date: 20050614
  Transmission Date: 20060501
  Serious: Yes (Hospitalization)
  Sender: FDA-Public Use
  Company Number: US-BRISTOL-MYERS SQUIBB COMPANY-13003074

PATIENT
  Age: 18 Year
  Sex: Male
  Weight: 151 kg

DRUGS (3)
  1. ABILIFY [Suspect]
     Indication: PSYCHOTIC DISORDER
     Route: 048
     Dates: start: 20040803
  2. ABILIFY [Suspect]
     Indication: SCHIZOPHRENIA, UNDIFFERENTIATED TYPE
     Route: 048
     Dates: start: 20040803
  3. PROZAC [Concomitant]

REACTIONS (1)
  - CARDIOMYOPATHY [None]
